FAERS Safety Report 9218258 (Version 1)
Quarter: 2013Q2

REPORT INFORMATION
  Report Type: Spontaneous
  Country: US (occurrence: US)
  Receive Date: 20130409
  Receipt Date: 20130409
  Transmission Date: 20140414
  Serious: Yes (Other)
  Sender: FDA-Public Use
  Company Number: US-AMGEN-USASP2013023712

PATIENT
  Age: 51 Year
  Sex: Male

DRUGS (1)
  1. ENBREL [Suspect]
     Indication: PSORIASIS
     Dosage: UNVERIFIED DOSAGE WEEKLY
     Dates: end: 201301

REACTIONS (3)
  - Feeling abnormal [Not Recovered/Not Resolved]
  - Influenza [Recovered/Resolved]
  - Lung disorder [Not Recovered/Not Resolved]
